FAERS Safety Report 8620141 (Version 3)
Quarter: 2015Q1

REPORT INFORMATION
  Report Type: Spontaneous
  Country: IN (occurrence: IN)
  Receive Date: 20120618
  Receipt Date: 20150115
  Transmission Date: 20150721
  Serious: Yes (Death, Other)
  Sender: FDA-Public Use
  Company Number: IN-PFIZER INC-2012067962

PATIENT
  Age: 50 Year
  Sex: Male

DRUGS (1)
  1. SUTENT [Suspect]
     Active Substance: SUNITINIB MALATE
     Indication: GASTROINTESTINAL STROMAL TUMOUR
     Dosage: 50 MG, 1X/DAY
     Route: 048
     Dates: start: 20120227, end: 20120509

REACTIONS (7)
  - Gastrointestinal stromal tumour [Fatal]
  - Abdominal abscess [Recovering/Resolving]
  - Erythema [Recovering/Resolving]
  - Disease progression [Fatal]
  - Oral mucosal erythema [Recovering/Resolving]
  - Yellow skin [Recovering/Resolving]
  - Constipation [Recovering/Resolving]

NARRATIVE: CASE EVENT DATE: 2012
